FAERS Safety Report 16551402 (Version 2)
Quarter: 2024Q4

REPORT INFORMATION
  Report Type: Spontaneous
  Country: JP (occurrence: JP)
  Receive Date: 20190710
  Receipt Date: 20241111
  Transmission Date: 20250114
  Serious: Yes (Hospitalization, Other)
  Sender: ROCHE
  Company Number: JP-MLMSERVICE-20190619-1809476-1

PATIENT
  Age: 17 Year
  Sex: Female
  Weight: 45.1 kg

DRUGS (7)
  1. CELLCEPT [Suspect]
     Active Substance: MYCOPHENOLATE MOFETIL
     Indication: Lupus nephritis
     Dosage: IN TWO DIVIDED DOSES; GIVEN FOR 12 DAYS
     Route: 048
  2. CELLCEPT [Suspect]
     Active Substance: MYCOPHENOLATE MOFETIL
     Route: 048
  3. CELLCEPT [Suspect]
     Active Substance: MYCOPHENOLATE MOFETIL
     Route: 048
  4. NEORAL [Concomitant]
     Active Substance: CYCLOSPORINE
     Indication: Lupus nephritis
  5. MIZORIBINE [Concomitant]
     Active Substance: MIZORIBINE
     Indication: Lupus nephritis
  6. PREDNISONE [Concomitant]
     Active Substance: PREDNISONE
     Indication: Lupus nephritis
  7. PREDNISONE [Concomitant]
     Active Substance: PREDNISONE
     Dosage: EVERY OTHER DAY

REACTIONS (7)
  - Posterior reversible encephalopathy syndrome [Recovered/Resolved]
  - Ileus [Recovered/Resolved]
  - Melaena [Recovered/Resolved]
  - Leukopenia [Recovered/Resolved]
  - Thrombocytopenia [Recovered/Resolved]
  - Seizure [Recovered/Resolved]
  - Febrile neutropenia [Recovered/Resolved]
